FAERS Safety Report 23784513 (Version 1)
Quarter: 2024Q2

REPORT INFORMATION
  Report Type: Spontaneous
  Country: US (occurrence: None)
  Receive Date: 20240425
  Receipt Date: 20240425
  Transmission Date: 20240715
  Serious: No
  Sender: FDA-Public Use
  Company Number: None

PATIENT
  Sex: 0

DRUGS (1)
  1. FOOD-S [Suspect]
     Active Substance: POTASSIUM CARBONATE
     Indication: Product used for unknown indication

REACTIONS (1)
  - Product quality issue [None]

NARRATIVE: CASE EVENT DATE: 20240402
